FAERS Safety Report 4388264-4 (Version None)
Quarter: 2004Q2

REPORT INFORMATION
  Report Type: 
  Country: None (occurrence: None)
  Receive Date: 20040630
  Receipt Date: 20040630
  Transmission Date: 20050107
  Serious: No
  Sender: FDA-Public Use
  Company Number: None

PATIENT
  Age: 42 Year
  Sex: Female
  Weight: 52 kg

DRUGS (1)
  1. DONOR STEM CELLS [Suspect]

REACTIONS (6)
  - ABDOMINAL TENDERNESS [None]
  - CANDIDIASIS [None]
  - COMPLICATIONS OF TRANSPLANT SURGERY [None]
  - DYSPNOEA [None]
  - PLEURAL EFFUSION [None]
  - RESPIRATORY FAILURE [None]
